FAERS Safety Report 19182059 (Version 3)
Quarter: 2021Q2

REPORT INFORMATION
  Report Type: Report from Study
  Country: None (occurrence: US)
  Receive Date: 20210427
  Receipt Date: 20210505
  Transmission Date: 20210717
  Serious: Yes (Hospitalization)
  Sender: FDA-Public Use
  Company Number: US-ABBVIE-21K-163-3871121-00

PATIENT
  Age: 76 Year
  Sex: Female
  Weight: 54.48 kg

DRUGS (11)
  1. CREON [Suspect]
     Active Substance: PANCRELIPASE AMYLASE\PANCRELIPASE LIPASE\PANCRELIPASE PROTEASE
     Dosage: TWO CAPSULES WITH EACH MEAL AND TWO CAPSULES FOR EACH SNACK
     Route: 048
     Dates: start: 20201212, end: 20210408
  2. CREON [Suspect]
     Active Substance: PANCRELIPASE AMYLASE\PANCRELIPASE LIPASE\PANCRELIPASE PROTEASE
     Indication: PANCREATITIS
     Dosage: TWO CAPSULES WITH EACH MEAL AND ONE CAPSULE FOR SNACK
     Route: 048
     Dates: start: 20201212, end: 20210408
  3. VITAMIN A + BETA CAROTENE [Concomitant]
     Indication: PRODUCT USED FOR UNKNOWN INDICATION
  4. TRAMADOL. [Concomitant]
     Active Substance: TRAMADOL
     Indication: PAIN
  5. TYLENOL [Concomitant]
     Active Substance: ACETAMINOPHEN
     Indication: PRODUCT USED FOR UNKNOWN INDICATION
  6. MOVANTIK [Concomitant]
     Active Substance: NALOXEGOL OXALATE
     Indication: PRODUCT USED FOR UNKNOWN INDICATION
  7. PANTOPRAZOLE [Concomitant]
     Active Substance: PANTOPRAZOLE
     Indication: ANTACID THERAPY
  8. VITAMIN D3 [Concomitant]
     Active Substance: CHOLECALCIFEROL
     Indication: PRODUCT USED FOR UNKNOWN INDICATION
  9. COVID?19 VACCINE NOS. [Concomitant]
     Active Substance: COVID-19 VACCINE NOS
     Indication: COVID-19 IMMUNISATION
     Dosage: 1ST DOSE
     Route: 030
  10. COVID?19 VACCINE NOS. [Concomitant]
     Active Substance: COVID-19 VACCINE NOS
     Dosage: 2ND DOSE
     Route: 030
  11. DULOXETINE. [Concomitant]
     Active Substance: DULOXETINE
     Indication: PRODUCT USED FOR UNKNOWN INDICATION

REACTIONS (16)
  - Hernia [Not Recovered/Not Resolved]
  - Prolapse [Recovering/Resolving]
  - Pancreatitis [Unknown]
  - Pulmonary mass [Not Recovered/Not Resolved]
  - Dyspepsia [Recovering/Resolving]
  - Retching [Unknown]
  - Sphincter of Oddi dysfunction [Recovering/Resolving]
  - Diverticulitis [Recovering/Resolving]
  - Back pain [Recovering/Resolving]
  - Malaise [Unknown]
  - Pharyngeal disorder [Recovering/Resolving]
  - Saliva altered [Unknown]
  - Spleen disorder [Not Recovered/Not Resolved]
  - Dysphagia [Unknown]
  - Constipation [Recovering/Resolving]
  - Spinal pain [Unknown]

NARRATIVE: CASE EVENT DATE: 202101
